FAERS Safety Report 21074874 (Version 9)
Quarter: 2022Q4

REPORT INFORMATION
  Report Type: Report from Study
  Country: US (occurrence: US)
  Receive Date: 20220713
  Receipt Date: 20221210
  Transmission Date: 20230113
  Serious: Yes (Other)
  Sender: FDA-Public Use
  Company Number: US-002147023-NVSC2022US157812

PATIENT
  Age: 54 Year
  Sex: Female

DRUGS (3)
  1. ENTRESTO [Suspect]
     Active Substance: SACUBITRIL\VALSARTAN
     Indication: Cardiac failure
     Dosage: 1 DOSAGE FORM, BID (24/26 MG)
     Route: 048
     Dates: start: 20211109
  2. ENTRESTO [Suspect]
     Active Substance: SACUBITRIL\VALSARTAN
     Dosage: 1 DOSAGE FORM, BID (49/51 MG)
     Route: 048
     Dates: start: 202207
  3. ENTRESTO [Suspect]
     Active Substance: SACUBITRIL\VALSARTAN
     Dosage: UNK
     Route: 048

REACTIONS (16)
  - Ejection fraction decreased [Unknown]
  - Renal impairment [Unknown]
  - Hypoaesthesia [Unknown]
  - Arthralgia [Unknown]
  - Pain in extremity [Unknown]
  - Limb discomfort [Unknown]
  - Muscle spasms [Unknown]
  - Peripheral swelling [Unknown]
  - Mobility decreased [Unknown]
  - Peripheral embolism [Unknown]
  - Poor peripheral circulation [Unknown]
  - Dyspnoea [Not Recovered/Not Resolved]
  - Swelling [Not Recovered/Not Resolved]
  - Pain [Unknown]
  - Hypotension [Recovered/Resolved]
  - Drug ineffective [Unknown]

NARRATIVE: CASE EVENT DATE: 20211109
